FAERS Safety Report 9260318 (Version 1)
Quarter: 2013Q2

REPORT INFORMATION
  Report Type: Spontaneous
  Country: US (occurrence: US)
  Receive Date: 20130429
  Receipt Date: 20130429
  Transmission Date: 20140414
  Serious: Yes (Other)
  Sender: FDA-Public Use
  Company Number: PHEH2013US009225

PATIENT
  Sex: Female

DRUGS (3)
  1. TEGRETOL [Suspect]
     Dosage: UNK UKN, UNK
  2. EMERGEN C [Suspect]
     Indication: BLOOD ELECTROLYTES ABNORMAL
     Dosage: 1 DF (PACKET), ONE MONTH
     Route: 048
     Dates: start: 201301, end: 201302
  3. ABILIFY [Concomitant]
     Indication: SCHIZOPHRENIA
     Dosage: 20 MG, UNK

REACTIONS (3)
  - Intestinal obstruction [Recovered/Resolved]
  - Drug hypersensitivity [Unknown]
  - Vomiting [Recovered/Resolved]
